FAERS Safety Report 24354376 (Version 2)
Quarter: 2024Q4

REPORT INFORMATION
  Report Type: Report from Study
  Country: US (occurrence: US)
  Receive Date: 20240923
  Receipt Date: 20241001
  Transmission Date: 20250115
  Serious: Yes (Hospitalization)
  Sender: BAXTER
  Company Number: US-BAXTER-2024BAX024593

PATIENT
  Age: 62 Year
  Sex: Female
  Weight: 64.2 kg

DRUGS (12)
  1. CYCLOPHOSPHAMIDE [Suspect]
     Active Substance: CYCLOPHOSPHAMIDE
     Indication: Diffuse large B-cell lymphoma stage III
     Dosage: 1300 MG, EVERY 3 WEEKS, ONGOING
     Route: 042
     Dates: start: 20240829
  2. DOXORUBICIN [Suspect]
     Active Substance: DOXORUBICIN
     Indication: Diffuse large B-cell lymphoma stage III
     Dosage: 85 MG, EVERY 3 WEEKS, ONGOING
     Route: 042
     Dates: start: 20240829
  3. EPCORITAMAB [Suspect]
     Active Substance: EPCORITAMAB
     Indication: Diffuse large B-cell lymphoma stage III
     Dosage: 0.16 MG PRIMING DOSE; C1, D1, TOTAL, ONGOING
     Route: 058
     Dates: start: 20240829
  4. PREDNISONE [Suspect]
     Active Substance: PREDNISONE
     Indication: Diffuse large B-cell lymphoma stage III
     Dosage: 100 MG DAILY C1-6, DAY 1-5, EVERY 1 DAYS, ONGOING
     Route: 048
     Dates: start: 20240829
  5. RITUXIMAB [Suspect]
     Active Substance: RITUXIMAB
     Indication: Diffuse large B-cell lymphoma stage III
     Dosage: 650 MG, EVERY 3 WEEKS, ONGOING
     Route: 042
     Dates: start: 20240829
  6. VINCRISTINE [Suspect]
     Active Substance: VINCRISTINE
     Indication: Diffuse large B-cell lymphoma stage III
     Dosage: 2 MG, EVERY 3 WEEKS, ONGOING
     Route: 042
     Dates: start: 20240829
  7. ROSUVASTATIN [Concomitant]
     Active Substance: ROSUVASTATIN
     Indication: Prophylaxis
     Dosage: 10 MG, EVERY 1 DAYS
     Route: 065
     Dates: start: 20240101
  8. ALLOPURINOL [Concomitant]
     Active Substance: ALLOPURINOL
     Indication: Prophylaxis
     Dosage: 300 MG, EVERY 1 DAYS
     Route: 065
     Dates: start: 20240822
  9. ACYCLOVIR [Concomitant]
     Active Substance: ACYCLOVIR
     Indication: Antiviral prophylaxis
     Dosage: 400 MG, 2/DAYS
     Route: 065
     Dates: start: 20240822
  10. SULFAMETHOXAZOLE\TRIMETHOPRIM [Concomitant]
     Active Substance: SULFAMETHOXAZOLE\TRIMETHOPRIM
     Indication: Antifungal prophylaxis
     Dosage: 160 MG, 3/WEEKS
     Route: 065
     Dates: start: 20240822
  11. PANTOPRAZOLE [Concomitant]
     Active Substance: PANTOPRAZOLE
     Indication: Gastrooesophageal reflux prophylaxis
     Dosage: 40 MG, EVERY 1 DAYS
     Route: 065
     Dates: start: 20240822
  12. ONDANSETRON [Concomitant]
     Active Substance: ONDANSETRON
     Indication: Nausea
     Dosage: 8 MG, AS NECESSARY
     Route: 065
     Dates: start: 20240829

REACTIONS (3)
  - Tinnitus [Recovered/Resolved]
  - Palpitations [Recovered/Resolved]
  - Non-cardiac chest pain [Recovered/Resolved]

NARRATIVE: CASE EVENT DATE: 20240830
